FAERS Safety Report 18409302 (Version 2)
Quarter: 2021Q1

REPORT INFORMATION
  Report Type: Spontaneous
  Country: FR (occurrence: FR)
  Receive Date: 20201021
  Receipt Date: 20210125
  Transmission Date: 20210419
  Serious: Yes (Death, Other)
  Sender: FDA-Public Use
  Company Number: FR-TEVA-2020-FR-1839706

PATIENT
  Age: 70 Year
  Sex: Male
  Weight: 65 kg

DRUGS (3)
  1. PERINDOPRIL [Suspect]
     Active Substance: PERINDOPRIL
     Indication: HYPERTENSION
     Dosage: INCREASED TO 4MG, UNIT DOSE 2 MG
     Dates: start: 201901
  2. DEPAKOTE [Suspect]
     Active Substance: DIVALPROEX SODIUM
     Indication: TEMPERATURE REGULATION DISORDER
     Dosage: DECREASED TO 500 MG IN FEBRUARY 2020, UNIT DOSE : 750 MG
     Route: 048
     Dates: start: 201412
  3. PAROXETINE. [Suspect]
     Active Substance: PAROXETINE
     Indication: MIXED ANXIETY AND DEPRESSIVE DISORDER
     Dosage: 1?0.5?1, UNIT DOSE : 50 MG
     Dates: start: 201911

REACTIONS (2)
  - Camptocormia [Not Recovered/Not Resolved]
  - Osteoporosis [Not Recovered/Not Resolved]

NARRATIVE: CASE EVENT DATE: 202006
